FAERS Safety Report 9157856 (Version 1)
Quarter: 2013Q1

REPORT INFORMATION
  Report Type: Report from Study
  Country: US (occurrence: US)
  Receive Date: 20130312
  Receipt Date: 20130312
  Transmission Date: 20140127
  Serious: No
  Sender: FDA-Public Use
  Company Number: US-009507513-1303USA003510

PATIENT
  Sex: Female

DRUGS (5)
  1. BOCEPREVIR [Suspect]
     Indication: CHRONIC HEPATITIS C
     Dosage: UNK UNK, TID
     Dates: start: 20110907
  2. RIBAVIRIN [Suspect]
     Indication: CHRONIC HEPATITIS C
     Dosage: 800 MG, QD
     Dates: start: 20111215
  3. RIBAVIRIN [Suspect]
     Dosage: 400 MG, QD
     Dates: start: 20120418
  4. PEGINTERFERON ALFA-2A [Suspect]
     Indication: CHRONIC HEPATITIS C
     Dosage: 180 MICROGRAM, QW
     Dates: start: 20110907
  5. PROCRIT [Concomitant]
     Dosage: 1 UNK, QW
     Dates: start: 20110927

REACTIONS (2)
  - Localised intraabdominal fluid collection [Unknown]
  - Fatigue [Unknown]
